FAERS Safety Report 12495208 (Version 1)
Quarter: 2016Q2

REPORT INFORMATION
  Report Type: Spontaneous
  Country: US (occurrence: None)
  Receive Date: 20160623
  Receipt Date: 20160623
  Transmission Date: 20160815
  Serious: No
  Sender: FDA-Public Use
  Company Number: None

PATIENT
  Age: 68 Year
  Sex: Male

DRUGS (38)
  1. DOCUSATE [Concomitant]
     Active Substance: DOCUSATE
  2. LACTULOSE. [Concomitant]
     Active Substance: LACTULOSE
  3. METOPROLOL TARTRATE. [Concomitant]
     Active Substance: METOPROLOL TARTRATE
  4. PHENYLEPHRINE [Concomitant]
     Active Substance: PHENYLEPHRINE\PHENYLEPHRINE HYDROCHLORIDE
  5. VANCOMYCIN [Concomitant]
     Active Substance: VANCOMYCIN
  6. CHLORHEXADINE [Concomitant]
     Active Substance: CHLORHEXIDINE
  7. LORAZAPAM [Concomitant]
     Active Substance: LORAZEPAM
  8. NOREPINEPHRINE [Concomitant]
     Active Substance: NOREPINEPHRINE\NOREPINEPHRINE BITARTRATE
  9. MAGNESIUM SULFATE. [Concomitant]
     Active Substance: MAGNESIUM SULFATE
  10. POTASSIUM CHLORIDE. [Concomitant]
     Active Substance: POTASSIUM CHLORIDE
  11. PROPOFOL. [Concomitant]
     Active Substance: PROPOFOL
  12. CALCIUM CHLORIDE. [Concomitant]
     Active Substance: CALCIUM CHLORIDE
  13. DEXTROSE. [Concomitant]
     Active Substance: DEXTROSE
  14. FOLIC ACID. [Concomitant]
     Active Substance: FOLIC ACID
  15. INSULIN ASPART [Concomitant]
     Active Substance: INSULIN ASPART
  16. VASOPRESSIN. [Concomitant]
     Active Substance: VASOPRESSIN
  17. NAFCILLIN [Suspect]
     Active Substance: NAFCILLIN\NAFCILLIN SODIUM
     Indication: STAPHYLOCOCCAL BACTERAEMIA
     Route: 042
     Dates: start: 20160105, end: 20160112
  18. AMIODARONE [Concomitant]
     Active Substance: AMIODARONE
  19. CASPOFUNGIN [Concomitant]
     Active Substance: CASPOFUNGIN
  20. FENTANYL. [Concomitant]
     Active Substance: FENTANYL
  21. BRIMONIDINE [Concomitant]
     Active Substance: BRIMONIDINE TARTRATE
  22. FUROSEMIDE. [Concomitant]
     Active Substance: FUROSEMIDE
  23. RANITIDINE. [Concomitant]
     Active Substance: RANITIDINE
  24. RIFAMPIN. [Concomitant]
     Active Substance: RIFAMPIN
  25. THIAMINE. [Concomitant]
     Active Substance: THIAMINE
  26. TIMOLOL. [Concomitant]
     Active Substance: TIMOLOL
  27. FAMOTIDINE. [Concomitant]
     Active Substance: FAMOTIDINE
  28. PIPERACILLIN/TAZOBACTAM [Concomitant]
     Active Substance: PIPERACILLIN SODIUM\TAZOBACTAM SODIUM
  29. SENNA [Concomitant]
     Active Substance: SENNA LEAF\SENNOSIDES\SENNOSIDES A AND B
  30. ACETAMINOPHEN. [Concomitant]
     Active Substance: ACETAMINOPHEN
  31. AMIKACIN [Concomitant]
     Active Substance: AMIKACIN
  32. SIMATOPROST [Concomitant]
  33. DIATRIZOATE [Concomitant]
     Active Substance: DIATRIZOATE MEGLUMINE
  34. HEPARIN [Concomitant]
     Active Substance: HEPARIN SODIUM
  35. INSULIN REGULAR [Concomitant]
     Active Substance: INSULIN NOS
  36. LEVOFLOXACIN. [Concomitant]
     Active Substance: LEVOFLOXACIN
  37. PANTOPRAZOLE [Concomitant]
     Active Substance: PANTOPRAZOLE SODIUM
  38. ZINC OXIDE. [Concomitant]
     Active Substance: ZINC OXIDE

REACTIONS (4)
  - Fall [None]
  - Dysarthria [None]
  - Mental status changes [None]
  - Hypernatraemia [None]

NARRATIVE: CASE EVENT DATE: 20160112
